FAERS Safety Report 9276551 (Version 1)
Quarter: 2013Q2

REPORT INFORMATION
  Report Type: Spontaneous
  Country: DE (occurrence: DE)
  Receive Date: 20130507
  Receipt Date: 20130507
  Transmission Date: 20140414
  Serious: Yes (Life-Threatening, Hospitalization, Other)
  Sender: FDA-Public Use
  Company Number: DE-ASTRAZENECA-2013SE22457

PATIENT
  Age: 10 Month
  Sex: Female
  Weight: 5.6 kg

DRUGS (5)
  1. SYNAGIS [Suspect]
     Indication: ANTIVIRAL PROPHYLAXIS
     Route: 030
     Dates: start: 20130111, end: 20130111
  2. SYNAGIS [Suspect]
     Indication: ANTIVIRAL PROPHYLAXIS
     Route: 030
     Dates: start: 20130208, end: 20130208
  3. SYNAGIS [Suspect]
     Indication: ANTIVIRAL PROPHYLAXIS
     Route: 030
     Dates: start: 20130311, end: 20130311
  4. FERRO SANOL [Concomitant]
  5. D-FLUORETTE [Concomitant]

REACTIONS (6)
  - Metabolic acidosis [Recovered/Resolved]
  - Cyanosis [Recovered/Resolved]
  - Pharyngeal erythema [Recovered/Resolved]
  - Candida infection [Recovered/Resolved]
  - Diarrhoea [Recovered/Resolved]
  - Respiratory syncytial virus infection [Recovered/Resolved]
